FAERS Safety Report 10592097 (Version 11)
Quarter: 2015Q4

REPORT INFORMATION
  Report Type: Report from Study
  Country: US (occurrence: US)
  Receive Date: 20141119
  Receipt Date: 20151211
  Transmission Date: 20160304
  Serious: Yes (Hospitalization, Other)
  Sender: FDA-Public Use
  Company Number: US-ROCHE-1490274

PATIENT
  Age: 53 Year
  Sex: Female
  Weight: 65.83 kg

DRUGS (44)
  1. OMALIZUMAB [Suspect]
     Active Substance: OMALIZUMAB
     Route: 058
     Dates: start: 20141204
  2. OMALIZUMAB [Suspect]
     Active Substance: OMALIZUMAB
     Route: 058
     Dates: start: 20150225
  3. NORVASC [Concomitant]
     Active Substance: AMLODIPINE BESYLATE
     Route: 065
     Dates: start: 20131002
  4. ATARAX [Concomitant]
     Active Substance: HYDROXYZINE\HYDROXYZINE HYDROCHLORIDE
     Route: 065
     Dates: start: 20131022
  5. BENADRYL [Concomitant]
     Active Substance: DIPHENHYDRAMINE HYDROCHLORIDE
     Route: 048
     Dates: start: 20150301, end: 20150301
  6. LIDOCAINE. [Concomitant]
     Active Substance: LIDOCAINE
     Route: 065
     Dates: start: 20140414
  7. OMALIZUMAB [Suspect]
     Active Substance: OMALIZUMAB
     Indication: ASTHMA
     Route: 058
     Dates: start: 20141031
  8. ATIVAN [Concomitant]
     Active Substance: LORAZEPAM
     Route: 042
     Dates: start: 20150328, end: 20150328
  9. ALBUTEROL. [Concomitant]
     Active Substance: ALBUTEROL
     Dosage: 2.5 MG/0.5 ML
     Route: 065
     Dates: start: 20150301, end: 20150301
  10. PROAIR HFA [Concomitant]
     Active Substance: ALBUTEROL SULFATE
     Route: 048
     Dates: start: 20091202
  11. ZANTAC [Concomitant]
     Active Substance: RANITIDINE HYDROCHLORIDE
     Indication: GASTROOESOPHAGEAL REFLUX DISEASE
     Route: 048
     Dates: start: 20140910
  12. ALLEGRA [Concomitant]
     Active Substance: FEXOFENADINE HYDROCHLORIDE
     Indication: HYPERSENSITIVITY
     Route: 048
     Dates: start: 20080512
  13. ALLEGRA [Concomitant]
     Active Substance: FEXOFENADINE HYDROCHLORIDE
     Route: 048
     Dates: start: 20150302, end: 20150302
  14. SINGULAIR [Concomitant]
     Active Substance: MONTELUKAST SODIUM
     Indication: ASTHMA
     Route: 048
     Dates: start: 20140125
  15. ALBUTEROL. [Concomitant]
     Active Substance: ALBUTEROL
     Route: 065
     Dates: start: 20150409, end: 20150409
  16. BENADRYL [Concomitant]
     Active Substance: DIPHENHYDRAMINE HYDROCHLORIDE
     Route: 065
     Dates: start: 20141209
  17. OMALIZUMAB [Suspect]
     Active Substance: OMALIZUMAB
     Route: 058
     Dates: start: 20141114
  18. ESTRACE [Concomitant]
     Active Substance: ESTRADIOL
     Route: 065
     Dates: start: 20120530
  19. PROAIR HFA [Concomitant]
     Active Substance: ALBUTEROL SULFATE
     Indication: ASTHMA
     Dosage: 2 PUFFS
     Route: 048
     Dates: start: 20080828
  20. NORVASC [Concomitant]
     Active Substance: AMLODIPINE BESYLATE
     Indication: HYPERTENSION
     Route: 048
     Dates: start: 20130712
  21. ATIVAN [Concomitant]
     Active Substance: LORAZEPAM
     Route: 042
     Dates: start: 20150421, end: 20150421
  22. ATIVAN [Concomitant]
     Active Substance: LORAZEPAM
     Route: 065
     Dates: start: 20141205
  23. ALBUTEROL. [Concomitant]
     Active Substance: ALBUTEROL
     Route: 065
     Dates: start: 20141204, end: 20141204
  24. BENADRYL [Concomitant]
     Active Substance: DIPHENHYDRAMINE HYDROCHLORIDE
     Route: 048
     Dates: start: 20150302, end: 20150302
  25. BENADRYL [Concomitant]
     Active Substance: DIPHENHYDRAMINE HYDROCHLORIDE
     Route: 042
     Dates: start: 20150409, end: 20150409
  26. NABUMETONE. [Concomitant]
     Active Substance: NABUMETONE
     Route: 065
     Dates: start: 20060814
  27. ATIVAN [Concomitant]
     Active Substance: LORAZEPAM
     Route: 065
     Dates: start: 20141204, end: 20141204
  28. MEDROL [Concomitant]
     Active Substance: METHYLPREDNISOLONE
     Route: 065
     Dates: start: 20130708
  29. OMALIZUMAB [Suspect]
     Active Substance: OMALIZUMAB
     Route: 058
     Dates: start: 20140114
  30. KETAMINE [Suspect]
     Active Substance: KETAMINE
     Indication: COMPLEX REGIONAL PAIN SYNDROME
     Route: 030
     Dates: start: 20141208
  31. ZANTAC [Concomitant]
     Active Substance: RANITIDINE HYDROCHLORIDE
     Route: 048
     Dates: start: 20150302, end: 20150302
  32. ATIVAN [Concomitant]
     Active Substance: LORAZEPAM
     Route: 042
     Dates: start: 20150301, end: 20150301
  33. ESTRACE [Concomitant]
     Active Substance: ESTRADIOL
     Indication: NIGHT SWEATS
     Route: 048
     Dates: start: 20120530
  34. ATARAX [Concomitant]
     Active Substance: HYDROXYZINE\HYDROXYZINE HYDROCHLORIDE
     Route: 048
     Dates: start: 20150302, end: 20150302
  35. ALBUTEROL. [Concomitant]
     Active Substance: ALBUTEROL
     Route: 065
     Dates: start: 20140828
  36. ALBUTEROL. [Concomitant]
     Active Substance: ALBUTEROL
     Dosage: 2 PUFFS
     Route: 065
     Dates: start: 20141031, end: 20141031
  37. FLEXERIL [Concomitant]
     Active Substance: CYCLOBENZAPRINE HYDROCHLORIDE
     Route: 065
     Dates: start: 20060804
  38. NIZORAL [Concomitant]
     Active Substance: KETOCONAZOLE
     Route: 065
     Dates: start: 20080512
  39. SINGULAIR [Concomitant]
     Active Substance: MONTELUKAST SODIUM
     Route: 048
     Dates: start: 20150301, end: 20150301
  40. SINGULAIR [Concomitant]
     Active Substance: MONTELUKAST SODIUM
     Route: 065
     Dates: start: 20141208, end: 20141208
  41. ATIVAN [Concomitant]
     Active Substance: LORAZEPAM
     Route: 065
     Dates: start: 20150409, end: 20150409
  42. ALBUTEROL. [Concomitant]
     Active Substance: ALBUTEROL
     Dosage: FORM STRENGTH: 2.5 MG/0.5 ML
     Route: 065
     Dates: start: 20150421, end: 20150421
  43. BENADRYL [Concomitant]
     Active Substance: DIPHENHYDRAMINE HYDROCHLORIDE
     Route: 065
     Dates: start: 20141208, end: 20141208
  44. FLONASE (UNITED STATES) [Concomitant]
     Route: 065
     Dates: start: 20110218

REACTIONS (5)
  - Anaphylactic reaction [Recovered/Resolved]
  - Feeling abnormal [Unknown]
  - Anaphylactic reaction [Recovered/Resolved]
  - Dizziness [Unknown]
  - Asthma [Unknown]

NARRATIVE: CASE EVENT DATE: 20141031
